FAERS Safety Report 20707006 (Version 1)
Quarter: 2022Q2

REPORT INFORMATION
  Report Type: Spontaneous
  Country: US (occurrence: US)
  Receive Date: 20220413
  Receipt Date: 20220413
  Transmission Date: 20220721
  Serious: No
  Sender: FDA-Public Use
  Company Number: US-PFIZER INC-202100991513

PATIENT
  Age: 80 Year
  Sex: Female
  Weight: 58.06 kg

DRUGS (1)
  1. CHANTIX [Suspect]
     Active Substance: VARENICLINE TARTRATE
     Indication: Smoking cessation therapy
     Dosage: UNK
     Dates: start: 20210409

REACTIONS (4)
  - Circumstance or information capable of leading to medication error [Unknown]
  - Recalled product [Unknown]
  - Discomfort [Unknown]
  - Heart rate abnormal [Unknown]
